FAERS Safety Report 24322436 (Version 1)
Quarter: 2024Q3

REPORT INFORMATION
  Report Type: Report from Study
  Country: MX (occurrence: MX)
  Receive Date: 20240916
  Receipt Date: 20240916
  Transmission Date: 20241016
  Serious: Yes (Death)
  Sender: ROCHE
  Company Number: MX-ROCHE-10000080746

PATIENT
  Sex: Female
  Weight: 58 kg

DRUGS (1)
  1. PERJETA [Suspect]
     Active Substance: PERTUZUMAB
     Indication: Breast cancer metastatic
     Route: 042
     Dates: start: 20220630, end: 20230613

REACTIONS (3)
  - Metastases to central nervous system [Fatal]
  - Disease progression [Fatal]
  - Drug ineffective [Unknown]
